FAERS Safety Report 8400070-X (Version None)
Quarter: 2012Q2

REPORT INFORMATION
  Report Type: 
  Country: None (occurrence: None)
  Receive Date: 20120531
  Receipt Date: 20120528
  Transmission Date: 20120825
  Serious: Yes (Death)
  Sender: FDA-Public Use
  Company Number: CA-B.I. PHARMACEUTICALS,INC./RIDGEFIELD-2012-CN-00997CN

PATIENT
  Sex: Female

DRUGS (2)
  1. WARFARIN SODIUM [Concomitant]
  2. PRADAXA [Suspect]

REACTIONS (1)
  - DEATH [None]
